FAERS Safety Report 11100624 (Version 1)
Quarter: 2015Q2

REPORT INFORMATION
  Report Type: Report from Study
  Country: BR (occurrence: BR)
  Receive Date: 20150508
  Receipt Date: 20150508
  Transmission Date: 20150821
  Serious: Yes (Other)
  Sender: FDA-Public Use
  Company Number: BR-ABBVIE-15K-020-1384591-00

PATIENT
  Age: 61 Year
  Sex: Female
  Weight: 53 kg

DRUGS (7)
  1. CODEINE [Concomitant]
     Active Substance: CODEINE
     Indication: PAIN
     Dosage: ONE TABLET IF PAIN
     Route: 048
     Dates: start: 201304
  2. CORTISONE [Concomitant]
     Active Substance: CORTISONE\HYDROCORTISONE
     Indication: PAIN
     Route: 048
     Dates: start: 201304
  3. TRAMADOL [Concomitant]
     Active Substance: TRAMADOL
     Indication: PAIN
     Dosage: ONE IN ONE WEEK
     Route: 048
     Dates: start: 201304
  4. CORTISONE [Concomitant]
     Active Substance: CORTISONE\HYDROCORTISONE
     Indication: SWELLING
  5. IBUPROFEN. [Concomitant]
     Active Substance: IBUPROFEN
     Indication: PAIN
     Route: 048
     Dates: start: 201304
  6. HUMIRA [Suspect]
     Active Substance: ADALIMUMAB
     Indication: RHEUMATOID ARTHRITIS
     Route: 058
     Dates: start: 20140214, end: 201502
  7. PARACETAMOL [Concomitant]
     Active Substance: ACETAMINOPHEN
     Indication: PAIN
     Dosage: ONE TABLET IF PAIN
     Route: 048
     Dates: start: 201304

REACTIONS (6)
  - Foot deformity [Not Recovered/Not Resolved]
  - Arthralgia [Not Recovered/Not Resolved]
  - Spinal pain [Recovering/Resolving]
  - Leukaemia [Unknown]
  - Blood test abnormal [Unknown]
  - Drug ineffective [Not Recovered/Not Resolved]

NARRATIVE: CASE EVENT DATE: 201502
